FAERS Safety Report 16428234 (Version 7)
Quarter: 2019Q4

REPORT INFORMATION
  Report Type: Report from Study
  Country: DE (occurrence: DE)
  Receive Date: 20190613
  Receipt Date: 20191202
  Transmission Date: 20200122
  Serious: Yes (Hospitalization, Other)
  Sender: FDA-Public Use
  Company Number: DE-PFIZER INC-2019248887

PATIENT
  Age: 46 Year
  Sex: Female

DRUGS (10)
  1. OCRELIZUMAB. [Suspect]
     Active Substance: OCRELIZUMAB
     Dosage: 600 MG, UNK
     Route: 042
     Dates: start: 20190429
  2. RAMILICH [Concomitant]
     Active Substance: RAMIPRIL
     Dosage: 2.5 MG, 1X/DAY
     Route: 065
  3. VIGANTOLETTEN [Concomitant]
     Active Substance: CHOLECALCIFEROL
     Dosage: 2000 IU, 1X/DAY
     Route: 065
  4. OCRELIZUMAB. [Suspect]
     Active Substance: OCRELIZUMAB
     Indication: RELAPSING-REMITTING MULTIPLE SCLEROSIS
     Dosage: 300 MG, UNK
     Route: 042
     Dates: start: 20181001
  5. L-THYROXIN [LEVOTHYROXINE] [Concomitant]
     Active Substance: LEVOTHYROXINE SODIUM
     Dosage: 88 UG, UNK
     Route: 065
     Dates: end: 201907
  6. RAMILICH [Concomitant]
     Active Substance: RAMIPRIL
     Dosage: 5 MG, 1X/DAY
     Route: 065
  7. RAMILICH [Concomitant]
     Active Substance: RAMIPRIL
     Dosage: 5 MG, 1X/DAY
     Route: 065
  8. CLINDAMYCIN HCL [Suspect]
     Active Substance: CLINDAMYCIN HYDROCHLORIDE
     Indication: SKIN BACTERIAL INFECTION
     Dosage: 300 MG, FOR 10 DAYS
     Route: 048
  9. OCRELIZUMAB. [Suspect]
     Active Substance: OCRELIZUMAB
     Dosage: 300 MG, UNK
     Route: 042
     Dates: start: 20181015
  10. VALETTE [Concomitant]
     Active Substance: DIENOGEST\ETHINYL ESTRADIOL
     Indication: CONTRACEPTION
     Dosage: UNK

REACTIONS (13)
  - Rash [Recovering/Resolving]
  - Vulvovaginal mycotic infection [Recovered/Resolved]
  - Vomiting [Recovered/Resolved]
  - Leiomyoma [Not Recovered/Not Resolved]
  - Dyspepsia [Recovered/Resolved]
  - Abscess [Recovering/Resolving]
  - Body temperature increased [Recovered/Resolved]
  - Oral fungal infection [Unknown]
  - Haematoma [Unknown]
  - Thrombosis [Not Recovered/Not Resolved]
  - Nausea [Recovered/Resolved]
  - Haematoma [Recovered/Resolved]
  - Skin bacterial infection [Recovered/Resolved]

NARRATIVE: CASE EVENT DATE: 20181001
